FAERS Safety Report 10623298 (Version 1)
Quarter: 2014Q4

REPORT INFORMATION
  Report Type: Other
  Country: DE (occurrence: DE)
  Receive Date: 20141203
  Receipt Date: 20141203
  Transmission Date: 20150529
  Serious: Yes (Other)
  Sender: FDA-Public Use
  Company Number: DE-MYLANLABS-2014M1011939

PATIENT

DRUGS (6)
  1. TRAZODONE [Concomitant]
     Active Substance: TRAZODONE HYDROCHLORIDE
     Indication: DEPRESSION
     Dosage: UNK
     Route: 064
  2. VENLAFAXINE [Suspect]
     Active Substance: VENLAFAXINE HYDROCHLORIDE
     Indication: DEPRESSION
     Dosage: 150 [MG/D ]
     Route: 064
  3. METHYLDOPA. [Concomitant]
     Active Substance: METHYLDOPA
     Indication: HYPERTENSION
     Dosage: 500 [MG/D (2 X 250 MG/D) ]
     Route: 064
     Dates: start: 20130705, end: 20130709
  4. FOLS?URE [Concomitant]
     Indication: PROPHYLAXIS OF NEURAL TUBE DEFECT
     Dosage: UNK
     Route: 064
  5. THYRONAJOD 50 HENNING [Concomitant]
     Indication: HYPOTHYROIDISM
     Dosage: 50 [?G/D ]
     Route: 064
  6. UTROGEST [Concomitant]
     Active Substance: PROGESTERONE
     Indication: PROPHYLAXIS OF ABORTION
     Dosage: UNK
     Route: 064

REACTIONS (7)
  - Agitation neonatal [Recovered/Resolved]
  - Feeding disorder neonatal [Recovered/Resolved]
  - Diarrhoea [Recovered/Resolved]
  - Oxygen saturation decreased [Recovered/Resolved]
  - Seizure [Recovered/Resolved]
  - Foetal exposure during pregnancy [Unknown]
  - Hypertonia neonatal [Recovered/Resolved]

NARRATIVE: CASE EVENT DATE: 20130709
